FAERS Safety Report 8339566-8 (Version None)
Quarter: 2012Q2

REPORT INFORMATION
  Report Type: 
  Country: None (occurrence: None)
  Receive Date: 20120507
  Receipt Date: 20120501
  Transmission Date: 20120825
  Serious: Yes (Other)
  Sender: FDA-Public Use
  Company Number: PHEH2012US009294

PATIENT
  Sex: Female
  Weight: 71.655 kg

DRUGS (1)
  1. DIOVAN HCT [Suspect]
     Dosage: 150 MG, QD

REACTIONS (1)
  - BREAST CANCER [None]
